FAERS Safety Report 7659936-0 (Version None)
Quarter: 2011Q3

REPORT INFORMATION
  Report Type: 
  Country: None (occurrence: None)
  Receive Date: 20110802
  Receipt Date: 20110725
  Transmission Date: 20111222
  Serious: Yes (Other)
  Sender: FDA-Public Use
  Company Number: 2011SP034454

PATIENT
  Age: 50 Year
  Sex: Male

DRUGS (1)
  1. PEGATRON (PEGYLATED INTERFERON ALFA-2B W/RIBAVIRIN) [Suspect]
     Indication: PRODUCT USED FOR UNKNOWN INDICATION
     Dates: start: 20110509

REACTIONS (3)
  - FEELING ABNORMAL [None]
  - HAEMATEMESIS [None]
  - INFLUENZA LIKE ILLNESS [None]
